FAERS Safety Report 4331030-6 (Version None)
Quarter: 2004Q1

REPORT INFORMATION
  Report Type: 
  Country: None (occurrence: None)
  Receive Date: 20040331
  Receipt Date: 20040318
  Transmission Date: 20041129
  Serious: Yes (Other)
  Sender: FDA-Public Use
  Company Number: 2004019172

PATIENT
  Age: 60 Year
  Sex: Male
  Weight: 88.4514 kg

DRUGS (3)
  1. VIAGRA [Suspect]
     Indication: ERECTILE DYSFUNCTION
     Dosage: 50 MG, ORAL
     Route: 048
     Dates: start: 20030921, end: 20030101
  2. ANTIHYPERTENSIVES [Concomitant]
  3. BISELECT (HYDROCHLOROTHIAZIDE, BISOPROLOL FUMARATE) [Concomitant]

REACTIONS (9)
  - BLOOD PRESSURE SYSTOLIC INCREASED [None]
  - BLOOD TESTOSTERONE DECREASED [None]
  - BREATH ALCOHOL TEST POSITIVE [None]
  - CYANOPSIA [None]
  - EYE REDNESS [None]
  - FLUSHING [None]
  - HALO VISION [None]
  - MYDRIASIS [None]
  - PROSTATE CANCER [None]
